FAERS Safety Report 17052324 (Version 3)
Quarter: 2020Q2

REPORT INFORMATION
  Report Type: Spontaneous
  Country: US (occurrence: US)
  Receive Date: 20191120
  Receipt Date: 20200527
  Transmission Date: 20200713
  Serious: Yes (Hospitalization, Other)
  Sender: FDA-Public Use
  Company Number: US-PFIZER INC-2018511164

PATIENT
  Age: 64 Year
  Sex: Female
  Weight: 72 kg

DRUGS (31)
  1. RAPAMUNE [Suspect]
     Active Substance: SIROLIMUS
     Indication: LUNG TRANSPLANT
     Dosage: 0.5 MG, ALTERNATE DAY (TAKE 0.5MG ON MWF. TAKE 1MG ON OTHER DAYS)
     Route: 048
  2. LOPRESSOR [Concomitant]
     Active Substance: METOPROLOL TARTRATE
     Dosage: 25 MG, DAILY (DISP: 90 TABLET, RFL: 3)
     Route: 048
  3. COUMADIN [Concomitant]
     Active Substance: WARFARIN SODIUM
     Dosage: 1 MG, DAILY (DISP: 90 TABLET, RFL: 3)
     Route: 048
  4. BARACLUDE [Concomitant]
     Active Substance: ENTECAVIR
     Indication: VIRAL LOAD
     Dosage: 0.5 MG, WEEKLY(DISP: 12 TABLET, RFL: 3 )
     Route: 048
  5. FLORANEX [Concomitant]
     Active Substance: LACTOBACILLUS ACIDOPHILUS\LACTOBACILLUS DELBRUECKII SUBSP. BULGARICUS
     Dosage: 2 DF, 2X/DAY(1 MILLION CELL TABLET, TAKE 2 TABLETS BY MOUTH 2  (TWO) TIMES A DAY)
     Route: 048
  6. ZITHROMAX [Concomitant]
     Active Substance: AZITHROMYCIN DIHYDRATE
     Dosage: 250 MG, UNK(TAKE 1 TABLET (250 MG TOTAL) BY MOUTH 3 (THREE) TIMES A WEEK;DISP: 36 TABLET, RFL: 3)
     Route: 048
  7. ZOFRAN [Concomitant]
     Active Substance: ONDANSETRON HYDROCHLORIDE
     Indication: NAUSEA
     Dosage: 4 MG, AS NEEDED(TAKE 1 TABLET EVERY 8 HOURS DISP: 20 TABLET, RFL: O)
  8. PROTONIX [Concomitant]
     Active Substance: PANTOPRAZOLE SODIUM
     Indication: GASTROOESOPHAGEAL REFLUX DISEASE
     Dosage: 40 MG, DAILY (DISP: 90 TABLET, RFL: 3)
     Route: 048
  9. SINGULAIR [Concomitant]
     Active Substance: MONTELUKAST SODIUM
     Dosage: 10 MG, 1X/DAY(NIGHTLY., DISP: 90 TABLET, RFL: 3)
     Route: 048
  10. ALLEGRA [Concomitant]
     Active Substance: FEXOFENADINE HYDROCHLORIDE
     Dosage: 60 MG, DAILY(DISP: 30 TABLET, RFL: 11)
     Route: 048
  11. NEURONTIN [Concomitant]
     Active Substance: GABAPENTIN
     Dosage: 100 MG, 3X/DAY(DISP: 270 CAPSULE, RFL: 3)
     Route: 048
  12. ATROVENT [Concomitant]
     Active Substance: IPRATROPIUM BROMIDE
     Dosage: 2.5 ML, 4X/DAY(TAKE 2.5 ML (0.5 MG TOTAL) BY NEBULIZATION EVERY 6 (SIX) HOURS.)
  13. MAG-OX [Concomitant]
     Active Substance: MAGNESIUM OXIDE
     Indication: HYPOMAGNESAEMIA
     Dosage: 800 MG, 2X/DAY((241.3 MG MAGNESIUM) )
     Route: 048
  14. OYSTER SHELL CALCIUM + D3 [Concomitant]
     Indication: OSTEOPENIA
     Dosage: 1 DF, 3X/DAY (500 MG (L ,250MG) -20C UNIT PER TABLET, A DAY WITH MEALS; DISP: 270 TABLET, RFL: 3)
  15. DELTASONE [Concomitant]
     Active Substance: PREDNISONE
     Indication: IMMUNOSUPPRESSION
     Dosage: 5 MG, DAILY (DISP: 45 TABLET, RFL: 3)
     Route: 048
  16. COUMADIN [Concomitant]
     Active Substance: WARFARIN SODIUM
     Dosage: 2 MG, DAILY (DISP: 90 TABLET, RFL: 3)
     Route: 048
  17. RAPAMUNE [Suspect]
     Active Substance: SIROLIMUS
     Indication: PULMONARY HYPERTENSION
     Dosage: 1 MG, DAILY (SOMETIMES SHE TAKES 1MG, TABLET, BY MOUTH, DAILY)
     Route: 048
  18. MEPRON [Concomitant]
     Active Substance: ATOVAQUONE
     Dosage: 750 MG, 2X/DAY(DISP: 900 ML, RFL: 3 )
     Route: 048
  19. PROGRAF [Concomitant]
     Active Substance: TACROLIMUS
     Indication: IMMUNOSUPPRESSION
     Dosage: 2 MG, 2X/DAY(BRAND AS MEDICALLY NECESSARY^, DISP: 360 CAPSULE, RFL: 3 )
     Route: 048
  20. PROGRAF [Concomitant]
     Active Substance: TACROLIMUS
     Dosage: 0.5 MG, 2X/DAY(BRAND AS MEDICALLY NECESSARY^, DISP: 180 CAPSULE, RFL: 3 )
     Route: 048
  21. HUMULIN NOS [Concomitant]
     Active Substance: INSULIN HUMAN
     Indication: DIABETES MELLITUS
     Dosage: UNK UNK, 2X/DAY(70-30 TAKE 22 UNITS IN THE AM AND 6 UNITS IN THE PM;DISP: 3 ML, RFL: 3)
  22. RAPAMUNE [Suspect]
     Active Substance: SIROLIMUS
     Indication: POST PROCEDURAL COMPLICATION
     Dosage: 0.5 MG, DAILY (SOMETIMES SHE TAKES 0.5MG TABLET, BY MOUTH, DAILY)
     Route: 048
  23. MUCOMYST [Concomitant]
     Active Substance: ACETYLCYSTEINE
     Dosage: 4 ML, AS NEEDED(TAKE 4 ML BY NEBULIZATION 2 (TWO) TIMES A DAY)
     Route: 045
  24. ECOTRIN [Concomitant]
     Active Substance: ASPIRIN
     Dosage: 81 MG, DAILY(DISP: 90 TABLET, RFL: 3)
     Route: 048
  25. PRAVACHOL [Concomitant]
     Active Substance: PRAVASTATIN SODIUM
     Indication: HYPERLIPIDAEMIA
     Dosage: 40 MG, 1X/DAY(BY MOUTH NIGHTLY FOR 30 DAYS; DISP: 30 TABLET, RFL: 0)
     Route: 048
  26. RAPAMUNE [Suspect]
     Active Substance: SIROLIMUS
     Dosage: 0.5 MG, 1X/DAY
  27. SODIUM CHLORIDE. [Concomitant]
     Active Substance: SODIUM CHLORIDE
     Indication: COUGH
     Dosage: 4 ML, AS NEEDED(DISP: 750 ML, RFL: 12 )
  28. HUMALOG [Concomitant]
     Active Substance: INSULIN LISPRO
     Dosage: UNK UNK, 3X/DAY(INJECT 0-5 UNITS UNDER THE SKIN 3 (THREE) TIMES A DAY WITH MEALS;DISP: 10 ML, RFL:3)
     Route: 058
  29. RAPAMUNE [Suspect]
     Active Substance: SIROLIMUS
     Indication: IMMUNOSUPPRESSANT DRUG THERAPY
     Dosage: 1 MG, ALTERNATE DAY (TAKE 0.5MG ON MWF. TAKE 1MG ON OTHER DAYS)
     Route: 048
  30. ZOFRAN [Concomitant]
     Active Substance: ONDANSETRON HYDROCHLORIDE
     Indication: VOMITING
  31. THERAGRAN [ASCORBIC ACID;BIOTIN;CALCIUM PANTOTHENATE;CYANOCOBALAMIN;ER [Concomitant]
     Dosage: 1 DF, DAILY (DISP: 90 TABLET, RFL: 3)
     Route: 048

REACTIONS (19)
  - Congenital tracheomalacia [Unknown]
  - Productive cough [Unknown]
  - Rhonchi [Unknown]
  - Deep vein thrombosis [Unknown]
  - Product use in unapproved indication [Unknown]
  - Vascular graft occlusion [Unknown]
  - Off label use [Unknown]
  - Asthenia [Unknown]
  - Wheezing [Unknown]
  - Bronchiectasis [Unknown]
  - Respiratory disorder [Unknown]
  - Dizziness [Unknown]
  - Obliterative bronchiolitis [Unknown]
  - Hypertension [Unknown]
  - Post procedural infection [Unknown]
  - Complications of transplanted lung [Unknown]
  - Dyspnoea [Not Recovered/Not Resolved]
  - Fatigue [Not Recovered/Not Resolved]
  - Pulmonary oedema [Unknown]
